FAERS Safety Report 5757904-7 (Version None)
Quarter: 2008Q2

REPORT INFORMATION
  Report Type: 
  Country: None (occurrence: None)
  Receive Date: 20080603
  Receipt Date: 20080603
  Transmission Date: 20081010
  Serious: No
  Sender: FDA-Public Use
  Company Number: None

PATIENT
  Age: 11 Year
  Sex: Male
  Weight: 44.4525 kg

DRUGS (2)
  1. FOCALIN XR [Suspect]
     Indication: ENCEPHALOPATHY
     Dates: start: 20060925, end: 20070130
  2. CONCERTA [Suspect]
     Indication: ATTENTION DEFICIT/HYPERACTIVITY DISORDER
     Dates: start: 20060925, end: 20070130

REACTIONS (1)
  - DRUG INEFFECTIVE [None]
